FAERS Safety Report 25643723 (Version 1)
Quarter: 2025Q3

REPORT INFORMATION
  Report Type: Spontaneous
  Country: AU (occurrence: AU)
  Receive Date: 20250805
  Receipt Date: 20250805
  Transmission Date: 20251020
  Serious: Yes (Other)
  Sender: MYLAN
  Company Number: AU-MYLANLABS-2025M1065858

PATIENT
  Age: 75 Year
  Sex: Male

DRUGS (160)
  1. AMIODARONE [Suspect]
     Active Substance: AMIODARONE
     Indication: Product used for unknown indication
  2. AMIODARONE [Suspect]
     Active Substance: AMIODARONE
     Route: 065
  3. AMIODARONE [Suspect]
     Active Substance: AMIODARONE
     Route: 065
  4. AMIODARONE [Suspect]
     Active Substance: AMIODARONE
  5. MORPHINE [Suspect]
     Active Substance: MORPHINE
     Indication: Product used for unknown indication
  6. MORPHINE [Suspect]
     Active Substance: MORPHINE
     Route: 065
  7. MORPHINE [Suspect]
     Active Substance: MORPHINE
     Route: 065
  8. MORPHINE [Suspect]
     Active Substance: MORPHINE
  9. ACYCLOVIR [Suspect]
     Active Substance: ACYCLOVIR
     Indication: Product used for unknown indication
  10. ACYCLOVIR [Suspect]
     Active Substance: ACYCLOVIR
     Route: 065
  11. ACYCLOVIR [Suspect]
     Active Substance: ACYCLOVIR
     Route: 065
  12. ACYCLOVIR [Suspect]
     Active Substance: ACYCLOVIR
  13. AZITHROMYCIN [Suspect]
     Active Substance: AZITHROMYCIN
     Indication: Product used for unknown indication
  14. AZITHROMYCIN [Suspect]
     Active Substance: AZITHROMYCIN
     Route: 065
  15. AZITHROMYCIN [Suspect]
     Active Substance: AZITHROMYCIN
     Route: 065
  16. AZITHROMYCIN [Suspect]
     Active Substance: AZITHROMYCIN
  17. CEFTRIAXONE [Suspect]
     Active Substance: CEFTRIAXONE
     Indication: Product used for unknown indication
  18. CEFTRIAXONE [Suspect]
     Active Substance: CEFTRIAXONE
     Route: 065
  19. CEFTRIAXONE [Suspect]
     Active Substance: CEFTRIAXONE
     Route: 065
  20. CEFTRIAXONE [Suspect]
     Active Substance: CEFTRIAXONE
  21. DEXAMETHASONE [Suspect]
     Active Substance: DEXAMETHASONE
     Indication: Product used for unknown indication
  22. DEXAMETHASONE [Suspect]
     Active Substance: DEXAMETHASONE
     Route: 065
  23. DEXAMETHASONE [Suspect]
     Active Substance: DEXAMETHASONE
     Route: 065
  24. DEXAMETHASONE [Suspect]
     Active Substance: DEXAMETHASONE
  25. ESOMEPRAZOLE [Suspect]
     Active Substance: ESOMEPRAZOLE
     Indication: Product used for unknown indication
  26. ESOMEPRAZOLE [Suspect]
     Active Substance: ESOMEPRAZOLE
     Route: 065
  27. ESOMEPRAZOLE [Suspect]
     Active Substance: ESOMEPRAZOLE
     Route: 065
  28. ESOMEPRAZOLE [Suspect]
     Active Substance: ESOMEPRAZOLE
  29. FUROSEMIDE [Suspect]
     Active Substance: FUROSEMIDE
     Indication: Product used for unknown indication
  30. FUROSEMIDE [Suspect]
     Active Substance: FUROSEMIDE
     Route: 065
  31. FUROSEMIDE [Suspect]
     Active Substance: FUROSEMIDE
     Route: 065
  32. FUROSEMIDE [Suspect]
     Active Substance: FUROSEMIDE
  33. FENTANYL [Suspect]
     Active Substance: FENTANYL
     Indication: Product used for unknown indication
  34. FENTANYL [Suspect]
     Active Substance: FENTANYL
     Route: 065
  35. FENTANYL [Suspect]
     Active Substance: FENTANYL
     Route: 065
  36. FENTANYL [Suspect]
     Active Substance: FENTANYL
  37. HYDROCORTISONE [Suspect]
     Active Substance: HYDROCORTISONE
     Indication: Product used for unknown indication
  38. HYDROCORTISONE [Suspect]
     Active Substance: HYDROCORTISONE
     Route: 065
  39. HYDROCORTISONE [Suspect]
     Active Substance: HYDROCORTISONE
     Route: 065
  40. HYDROCORTISONE [Suspect]
     Active Substance: HYDROCORTISONE
  41. METOPROLOL [Suspect]
     Active Substance: METOPROLOL
     Indication: Product used for unknown indication
  42. METOPROLOL [Suspect]
     Active Substance: METOPROLOL
     Route: 065
  43. METOPROLOL [Suspect]
     Active Substance: METOPROLOL
     Route: 065
  44. METOPROLOL [Suspect]
     Active Substance: METOPROLOL
  45. IPRATROPIUM [Suspect]
     Active Substance: IPRATROPIUM
     Indication: Product used for unknown indication
  46. IPRATROPIUM [Suspect]
     Active Substance: IPRATROPIUM
     Route: 065
  47. IPRATROPIUM [Suspect]
     Active Substance: IPRATROPIUM
     Route: 065
  48. IPRATROPIUM [Suspect]
     Active Substance: IPRATROPIUM
  49. KETAMINE [Suspect]
     Active Substance: KETAMINE
     Indication: Product used for unknown indication
  50. KETAMINE [Suspect]
     Active Substance: KETAMINE
     Route: 065
  51. KETAMINE [Suspect]
     Active Substance: KETAMINE
     Route: 065
  52. KETAMINE [Suspect]
     Active Substance: KETAMINE
  53. MIDAZOLAM [Suspect]
     Active Substance: MIDAZOLAM
     Indication: Product used for unknown indication
  54. MIDAZOLAM [Suspect]
     Active Substance: MIDAZOLAM
     Route: 065
  55. MIDAZOLAM [Suspect]
     Active Substance: MIDAZOLAM
     Route: 065
  56. MIDAZOLAM [Suspect]
     Active Substance: MIDAZOLAM
  57. ROCURONIUM [Suspect]
     Active Substance: ROCURONIUM BROMIDE
     Indication: Product used for unknown indication
  58. ROCURONIUM [Suspect]
     Active Substance: ROCURONIUM BROMIDE
     Route: 065
  59. ROCURONIUM [Suspect]
     Active Substance: ROCURONIUM BROMIDE
     Route: 065
  60. ROCURONIUM [Suspect]
     Active Substance: ROCURONIUM BROMIDE
  61. ALBUTEROL [Suspect]
     Active Substance: ALBUTEROL
     Indication: Product used for unknown indication
  62. ALBUTEROL [Suspect]
     Active Substance: ALBUTEROL
     Route: 065
  63. ALBUTEROL [Suspect]
     Active Substance: ALBUTEROL
     Route: 065
  64. ALBUTEROL [Suspect]
     Active Substance: ALBUTEROL
  65. VANCOMYCIN [Suspect]
     Active Substance: VANCOMYCIN
     Indication: Product used for unknown indication
  66. VANCOMYCIN [Suspect]
     Active Substance: VANCOMYCIN
     Route: 065
  67. VANCOMYCIN [Suspect]
     Active Substance: VANCOMYCIN
     Route: 065
  68. VANCOMYCIN [Suspect]
     Active Substance: VANCOMYCIN
  69. ACTRAPID [Suspect]
     Active Substance: INSULIN HUMAN
     Indication: Product used for unknown indication
  70. ACTRAPID [Suspect]
     Active Substance: INSULIN HUMAN
     Route: 065
  71. ACTRAPID [Suspect]
     Active Substance: INSULIN HUMAN
     Route: 065
  72. ACTRAPID [Suspect]
     Active Substance: INSULIN HUMAN
  73. MOVICOL [Suspect]
     Active Substance: POLYETHYLENE GLYCOL 3350\POTASSIUM CHLORIDE\SODIUM BICARBONATE\SODIUM CHLORIDE
     Indication: Product used for unknown indication
  74. MOVICOL [Suspect]
     Active Substance: POLYETHYLENE GLYCOL 3350\POTASSIUM CHLORIDE\SODIUM BICARBONATE\SODIUM CHLORIDE
     Route: 065
  75. MOVICOL [Suspect]
     Active Substance: POLYETHYLENE GLYCOL 3350\POTASSIUM CHLORIDE\SODIUM BICARBONATE\SODIUM CHLORIDE
     Route: 065
  76. MOVICOL [Suspect]
     Active Substance: POLYETHYLENE GLYCOL 3350\POTASSIUM CHLORIDE\SODIUM BICARBONATE\SODIUM CHLORIDE
  77. PIPERACILLIN SODIUM\TAZOBACTAM SODIUM [Suspect]
     Active Substance: PIPERACILLIN SODIUM\TAZOBACTAM SODIUM
     Indication: Product used for unknown indication
  78. PIPERACILLIN SODIUM\TAZOBACTAM SODIUM [Suspect]
     Active Substance: PIPERACILLIN SODIUM\TAZOBACTAM SODIUM
     Route: 065
  79. PIPERACILLIN SODIUM\TAZOBACTAM SODIUM [Suspect]
     Active Substance: PIPERACILLIN SODIUM\TAZOBACTAM SODIUM
     Route: 065
  80. PIPERACILLIN SODIUM\TAZOBACTAM SODIUM [Suspect]
     Active Substance: PIPERACILLIN SODIUM\TAZOBACTAM SODIUM
  81. ATOVAQUONE [Suspect]
     Active Substance: ATOVAQUONE
     Indication: Product used for unknown indication
  82. ATOVAQUONE [Suspect]
     Active Substance: ATOVAQUONE
     Route: 065
  83. ATOVAQUONE [Suspect]
     Active Substance: ATOVAQUONE
     Route: 065
  84. ATOVAQUONE [Suspect]
     Active Substance: ATOVAQUONE
  85. CALCIUM CHLORIDE [Suspect]
     Active Substance: CALCIUM CHLORIDE
     Indication: Product used for unknown indication
  86. CALCIUM CHLORIDE [Suspect]
     Active Substance: CALCIUM CHLORIDE
     Route: 065
  87. CALCIUM CHLORIDE [Suspect]
     Active Substance: CALCIUM CHLORIDE
     Route: 065
  88. CALCIUM CHLORIDE [Suspect]
     Active Substance: CALCIUM CHLORIDE
  89. CALCIUM GLUCONATE MONOHYDRATE [Suspect]
     Active Substance: CALCIUM GLUCONATE MONOHYDRATE
     Indication: Product used for unknown indication
  90. CALCIUM GLUCONATE MONOHYDRATE [Suspect]
     Active Substance: CALCIUM GLUCONATE MONOHYDRATE
     Route: 065
  91. CALCIUM GLUCONATE MONOHYDRATE [Suspect]
     Active Substance: CALCIUM GLUCONATE MONOHYDRATE
     Route: 065
  92. CALCIUM GLUCONATE MONOHYDRATE [Suspect]
     Active Substance: CALCIUM GLUCONATE MONOHYDRATE
  93. DIGOXIN [Suspect]
     Active Substance: DIGOXIN
     Indication: Product used for unknown indication
  94. DIGOXIN [Suspect]
     Active Substance: DIGOXIN
     Route: 065
  95. DIGOXIN [Suspect]
     Active Substance: DIGOXIN
     Route: 065
  96. DIGOXIN [Suspect]
     Active Substance: DIGOXIN
  97. ENOXAPARIN [Suspect]
     Active Substance: ENOXAPARIN
     Indication: Product used for unknown indication
  98. ENOXAPARIN [Suspect]
     Active Substance: ENOXAPARIN
     Route: 065
  99. ENOXAPARIN [Suspect]
     Active Substance: ENOXAPARIN
     Route: 065
  100. ENOXAPARIN [Suspect]
     Active Substance: ENOXAPARIN
  101. MAGNESIUM SULFATE HEPTAHYDRATE [Suspect]
     Active Substance: MAGNESIUM SULFATE HEPTAHYDRATE
     Indication: Product used for unknown indication
  102. MAGNESIUM SULFATE HEPTAHYDRATE [Suspect]
     Active Substance: MAGNESIUM SULFATE HEPTAHYDRATE
     Route: 065
  103. MAGNESIUM SULFATE HEPTAHYDRATE [Suspect]
     Active Substance: MAGNESIUM SULFATE HEPTAHYDRATE
     Route: 065
  104. MAGNESIUM SULFATE HEPTAHYDRATE [Suspect]
     Active Substance: MAGNESIUM SULFATE HEPTAHYDRATE
  105. METARAMINOL BITARTRATE [Suspect]
     Active Substance: METARAMINOL BITARTRATE
     Indication: Product used for unknown indication
  106. METARAMINOL BITARTRATE [Suspect]
     Active Substance: METARAMINOL BITARTRATE
     Route: 065
  107. METARAMINOL BITARTRATE [Suspect]
     Active Substance: METARAMINOL BITARTRATE
     Route: 065
  108. METARAMINOL BITARTRATE [Suspect]
     Active Substance: METARAMINOL BITARTRATE
  109. METOCLOPRAMIDE [Suspect]
     Active Substance: METOCLOPRAMIDE
     Indication: Product used for unknown indication
  110. METOCLOPRAMIDE [Suspect]
     Active Substance: METOCLOPRAMIDE
     Route: 065
  111. METOCLOPRAMIDE [Suspect]
     Active Substance: METOCLOPRAMIDE
     Route: 065
  112. METOCLOPRAMIDE [Suspect]
     Active Substance: METOCLOPRAMIDE
  113. POTASSIUM PHOSPHATE, MONOBASIC [Suspect]
     Active Substance: POTASSIUM PHOSPHATE, MONOBASIC
     Indication: Product used for unknown indication
  114. POTASSIUM PHOSPHATE, MONOBASIC [Suspect]
     Active Substance: POTASSIUM PHOSPHATE, MONOBASIC
     Route: 065
  115. POTASSIUM PHOSPHATE, MONOBASIC [Suspect]
     Active Substance: POTASSIUM PHOSPHATE, MONOBASIC
     Route: 065
  116. POTASSIUM PHOSPHATE, MONOBASIC [Suspect]
     Active Substance: POTASSIUM PHOSPHATE, MONOBASIC
  117. NITRIC OXIDE [Suspect]
     Active Substance: NITRIC OXIDE
     Indication: Product used for unknown indication
  118. NITRIC OXIDE [Suspect]
     Active Substance: NITRIC OXIDE
     Route: 065
  119. NITRIC OXIDE [Suspect]
     Active Substance: NITRIC OXIDE
     Route: 065
  120. NITRIC OXIDE [Suspect]
     Active Substance: NITRIC OXIDE
  121. NOREPINEPHRINE BITARTRATE [Suspect]
     Active Substance: NOREPINEPHRINE BITARTRATE
     Indication: Product used for unknown indication
  122. NOREPINEPHRINE BITARTRATE [Suspect]
     Active Substance: NOREPINEPHRINE BITARTRATE
     Route: 065
  123. NOREPINEPHRINE BITARTRATE [Suspect]
     Active Substance: NOREPINEPHRINE BITARTRATE
     Route: 065
  124. NOREPINEPHRINE BITARTRATE [Suspect]
     Active Substance: NOREPINEPHRINE BITARTRATE
  125. ACETAMINOPHEN [Suspect]
     Active Substance: ACETAMINOPHEN
     Indication: Product used for unknown indication
  126. ACETAMINOPHEN [Suspect]
     Active Substance: ACETAMINOPHEN
     Route: 065
  127. ACETAMINOPHEN [Suspect]
     Active Substance: ACETAMINOPHEN
     Route: 065
  128. ACETAMINOPHEN [Suspect]
     Active Substance: ACETAMINOPHEN
  129. POTASSIUM CHLORIDE [Suspect]
     Active Substance: POTASSIUM CHLORIDE
     Indication: Product used for unknown indication
  130. POTASSIUM CHLORIDE [Suspect]
     Active Substance: POTASSIUM CHLORIDE
     Route: 065
  131. POTASSIUM CHLORIDE [Suspect]
     Active Substance: POTASSIUM CHLORIDE
     Route: 065
  132. POTASSIUM CHLORIDE [Suspect]
     Active Substance: POTASSIUM CHLORIDE
  133. PROPOFOL [Suspect]
     Active Substance: PROPOFOL
     Indication: Product used for unknown indication
  134. PROPOFOL [Suspect]
     Active Substance: PROPOFOL
     Route: 065
  135. PROPOFOL [Suspect]
     Active Substance: PROPOFOL
     Route: 065
  136. PROPOFOL [Suspect]
     Active Substance: PROPOFOL
  137. REMDESIVIR [Suspect]
     Active Substance: REMDESIVIR
     Indication: Product used for unknown indication
  138. REMDESIVIR [Suspect]
     Active Substance: REMDESIVIR
     Route: 065
  139. REMDESIVIR [Suspect]
     Active Substance: REMDESIVIR
     Route: 065
  140. REMDESIVIR [Suspect]
     Active Substance: REMDESIVIR
  141. SENNOSIDES [Suspect]
     Active Substance: SENNOSIDES
     Indication: Product used for unknown indication
  142. SENNOSIDES [Suspect]
     Active Substance: SENNOSIDES
     Route: 065
  143. SENNOSIDES [Suspect]
     Active Substance: SENNOSIDES
     Route: 065
  144. SENNOSIDES [Suspect]
     Active Substance: SENNOSIDES
  145. SODIUM CHLORIDE [Suspect]
     Active Substance: SODIUM CHLORIDE
     Indication: Product used for unknown indication
  146. SODIUM CHLORIDE [Suspect]
     Active Substance: SODIUM CHLORIDE
     Route: 065
  147. SODIUM CHLORIDE [Suspect]
     Active Substance: SODIUM CHLORIDE
     Route: 065
  148. SODIUM CHLORIDE [Suspect]
     Active Substance: SODIUM CHLORIDE
  149. SULFAMETHOXAZOLE\TRIMETHOPRIM [Suspect]
     Active Substance: SULFAMETHOXAZOLE\TRIMETHOPRIM
     Indication: Product used for unknown indication
  150. SULFAMETHOXAZOLE\TRIMETHOPRIM [Suspect]
     Active Substance: SULFAMETHOXAZOLE\TRIMETHOPRIM
     Route: 065
  151. SULFAMETHOXAZOLE\TRIMETHOPRIM [Suspect]
     Active Substance: SULFAMETHOXAZOLE\TRIMETHOPRIM
     Route: 065
  152. SULFAMETHOXAZOLE\TRIMETHOPRIM [Suspect]
     Active Substance: SULFAMETHOXAZOLE\TRIMETHOPRIM
  153. THIAMINE HYDROCHLORIDE [Suspect]
     Active Substance: THIAMINE HYDROCHLORIDE
     Indication: Product used for unknown indication
  154. THIAMINE HYDROCHLORIDE [Suspect]
     Active Substance: THIAMINE HYDROCHLORIDE
     Route: 065
  155. THIAMINE HYDROCHLORIDE [Suspect]
     Active Substance: THIAMINE HYDROCHLORIDE
     Route: 065
  156. THIAMINE HYDROCHLORIDE [Suspect]
     Active Substance: THIAMINE HYDROCHLORIDE
  157. RITUXIMAB [Concomitant]
     Active Substance: RITUXIMAB
  158. RITUXIMAB [Concomitant]
     Active Substance: RITUXIMAB
     Route: 065
  159. RITUXIMAB [Concomitant]
     Active Substance: RITUXIMAB
     Route: 065
  160. RITUXIMAB [Concomitant]
     Active Substance: RITUXIMAB

REACTIONS (2)
  - Respiratory failure [Unknown]
  - Condition aggravated [Unknown]
